FAERS Safety Report 8523923-0 (Version None)
Quarter: 2012Q3

REPORT INFORMATION
  Report Type: 
  Country: None (occurrence: None)
  Receive Date: 20120720
  Receipt Date: 20120710
  Transmission Date: 20120928
  Serious: Yes (Hospitalization)
  Sender: FDA-Public Use
  Company Number: FR-BRISTOL-MYERS SQUIBB COMPANY-16738148

PATIENT
  Age: 50 Year
  Sex: Male

DRUGS (8)
  1. NEBIVOLOL HCL [Concomitant]
  2. PRAVASTATIN [Concomitant]
  3. TRUVADA [Suspect]
     Indication: HIV INFECTION
     Route: 048
     Dates: start: 20060412
  4. SUBUTEX [Concomitant]
  5. PLAVIX [Concomitant]
  6. SUSTIVA [Suspect]
     Indication: HIV INFECTION
     Route: 048
     Dates: start: 20021104
  7. PERINDOPRIL ERBUMINE [Concomitant]
  8. ZOLPIDEM TARTRATE [Concomitant]

REACTIONS (1)
  - PANCREATITIS ACUTE [None]
